FAERS Safety Report 5036118-2 (Version None)
Quarter: 2006Q2

REPORT INFORMATION
  Report Type: 
  Country: None (occurrence: None)
  Receive Date: 20060531
  Receipt Date: 20050617
  Transmission Date: 20061013
  Serious: Yes (Other)
  Sender: FDA-Public Use
  Company Number: 2005079338

PATIENT
  Age: 67 Year
  Sex: Female
  Weight: 77.1115 kg

DRUGS (10)
  1. SOLU-MEDROL [Suspect]
     Indication: NEUROPATHY PERIPHERAL
     Dosage: 500 MG (500 MG, ONCE), INTRAVENOUS
     Route: 042
     Dates: start: 20050509, end: 20050509
  2. SOLU-MEDROL [Suspect]
     Indication: POLYNEUROPATHY
     Dosage: 500 MG (500 MG, ONCE), INTRAVENOUS
     Route: 042
     Dates: start: 20050509, end: 20050509
  3. ACIPHEX [Concomitant]
  4. TRAMADOL HCL [Concomitant]
  5. BUSPAR [Concomitant]
  6. NEURONTIN [Concomitant]
  7. TRAZODONE HCL [Concomitant]
  8. PRED FORTE [Concomitant]
  9. ATIVAN [Concomitant]
  10. RESTORIL [Concomitant]

REACTIONS (5)
  - DYSPEPSIA [None]
  - FATIGUE [None]
  - HYPERSENSITIVITY [None]
  - MALAISE [None]
  - SKIN BURNING SENSATION [None]
